FAERS Safety Report 10379644 (Version 2)
Quarter: 2014Q4

REPORT INFORMATION
  Report Type: Spontaneous
  Country: US (occurrence: US)
  Receive Date: 20140812
  Receipt Date: 20141009
  Transmission Date: 20150528
  Serious: No
  Sender: FDA-Public Use
  Company Number: US-009507513-1408USA006417

PATIENT
  Age: 42 Year
  Sex: Female
  Weight: 77.98 kg

DRUGS (1)
  1. NUVARING [Suspect]
     Active Substance: ETHINYL ESTRADIOL\ETONOGESTREL
     Indication: CONTRACEPTION
     Dosage: THREE WEEKS IN / ONE WEEK OUT
     Route: 067
     Dates: start: 2006

REACTIONS (5)
  - Incorrect drug administration duration [Unknown]
  - Menstruation irregular [Not Recovered/Not Resolved]
  - Muscle spasms [Unknown]
  - Metrorrhagia [Unknown]
  - Discomfort [Unknown]

NARRATIVE: CASE EVENT DATE: 2014
